FAERS Safety Report 7592040-9 (Version None)
Quarter: 2011Q2

REPORT INFORMATION
  Report Type: 
  Country: None (occurrence: None)
  Receive Date: 20110628
  Receipt Date: 20110616
  Transmission Date: 20111010
  Serious: Yes (Other)
  Sender: FDA-Public Use
  Company Number: DSA_45545_2011

PATIENT
  Age: 29 Year
  Sex: Female

DRUGS (3)
  1. ELONTRIL (ELONTRIL - BUPROPION HYDROCHLORIDE) 150 MG (NOT SPECIFIED) [Suspect]
     Indication: MAJOR DEPRESSION
     Dosage: 150 MG QD ORAL, 300 MG QD ORAL, 150 MG QD ORAL
     Route: 048
     Dates: start: 20101201
  2. ELONTRIL (ELONTRIL - BUPROPION HYDROCHLORIDE) 150 MG (NOT SPECIFIED) [Suspect]
     Indication: MAJOR DEPRESSION
     Dosage: 150 MG QD ORAL, 300 MG QD ORAL, 150 MG QD ORAL
     Route: 048
     Dates: start: 20110426
  3. NORMATAZEPAM [Suspect]
     Indication: MAJOR DEPRESSION
     Dosage: DF ORAL
     Route: 048
     Dates: start: 20101201, end: 20110426

REACTIONS (2)
  - ABORTION SPONTANEOUS [None]
  - DRUG EXPOSURE DURING PREGNANCY [None]
